FAERS Safety Report 5905082-3 (Version None)
Quarter: 2008Q4

REPORT INFORMATION
  Report Type: 
  Country: None (occurrence: None)
  Receive Date: 20081001
  Receipt Date: 20080924
  Transmission Date: 20090506
  Serious: Yes (Hospitalization)
  Sender: FDA-Public Use
  Company Number: US-ABBOTT-08P-163-0478166-00

PATIENT
  Sex: Male
  Weight: 210 kg

DRUGS (5)
  1. HUMIRA [Suspect]
     Indication: RHEUMATOID ARTHRITIS
     Route: 058
     Dates: start: 20070101
  2. HUMIRA [Suspect]
     Route: 058
     Dates: start: 20060101, end: 20070101
  3. METHOTREXATE [Concomitant]
     Indication: RHEUMATOID ARTHRITIS
     Dosage: 6 - 2.5MG TABLETS WEEKLY
     Route: 048
     Dates: start: 20050101
  4. METAXALONE [Concomitant]
     Indication: MUSCLE RELAXANT THERAPY
     Route: 048
  5. VALIUM [Concomitant]
     Indication: SEDATIVE THERAPY
     Route: 048
     Dates: start: 20080101

REACTIONS (3)
  - LIP SWELLING [None]
  - STEVENS-JOHNSON SYNDROME [None]
  - STOMATITIS [None]
